FAERS Safety Report 6013517-3 (Version None)
Quarter: 2008Q4

REPORT INFORMATION
  Report Type: 
  Country: None (occurrence: None)
  Receive Date: 20081219
  Receipt Date: 20081208
  Transmission Date: 20090506
  Serious: Yes (Other)
  Sender: FDA-Public Use
  Company Number: PHHY2008SI31116

PATIENT
  Sex: Female

DRUGS (1)
  1. EMSELEX MODIFIED RELEASE [Suspect]
     Indication: HYPERTONIC BLADDER
     Dosage: 7.5 MG UNK
     Route: 048

REACTIONS (1)
  - ARRHYTHMIA [None]
